FAERS Safety Report 5801657-0 (Version None)
Quarter: 2008Q3

REPORT INFORMATION
  Report Type: 
  Country: None (occurrence: None)
  Receive Date: 20080702
  Receipt Date: 20080620
  Transmission Date: 20090109
  Serious: Yes (Hospitalization, Other)
  Sender: FDA-Public Use
  Company Number: 235936J08USA

PATIENT
  Age: 35 Year
  Sex: Female
  Weight: 108.8633 kg

DRUGS (4)
  1. REBIF [Suspect]
     Indication: MULTIPLE SCLEROSIS
     Dosage: 22 MCG, 3 IN 1 WEEKS, SUBCUTANEOUS
     Route: 058
     Dates: start: 20080514, end: 20080606
  2. PROVIGIL [Concomitant]
  3. AMBIEN [Concomitant]
  4. LYRICA [Concomitant]

REACTIONS (5)
  - BLISTER [None]
  - CARDIAC DISORDER [None]
  - HAEMOPTYSIS [None]
  - PRURITUS [None]
  - VOMITING [None]
